FAERS Safety Report 9033108 (Version 1)
Quarter: 2013Q1

REPORT INFORMATION
  Report Type: Spontaneous
  Country: JP (occurrence: JP)
  Receive Date: 20130128
  Receipt Date: 20130128
  Transmission Date: 20140127
  Serious: Yes (Other)
  Sender: FDA-Public Use
  Company Number: JP-PFIZER INC-2013029037

PATIENT
  Age: 6 Decade
  Sex: Male

DRUGS (1)
  1. FARMORUBICIN [Suspect]
     Indication: BLADDER CANCER
     Route: 043

REACTIONS (2)
  - Urinary retention [Not Recovered/Not Resolved]
  - Dysuria [Recovered/Resolved]
